FAERS Safety Report 12165815 (Version 2)
Quarter: 2016Q1

REPORT INFORMATION
  Report Type: Spontaneous
  Country: DE (occurrence: DE)
  Receive Date: 20160309
  Receipt Date: 20160310
  Transmission Date: 20160526
  Serious: Yes (Other)
  Sender: FDA-Public Use
  Company Number: DE-WATSON-2016-04964

PATIENT
  Sex: Female

DRUGS (1)
  1. CITALOPRAM [Suspect]
     Active Substance: CITALOPRAM HYDROBROMIDE
     Indication: ANTIDEPRESSANT THERAPY
     Dosage: 20 MG, DAILY
     Route: 048
     Dates: start: 2009, end: 201601

REACTIONS (7)
  - Paraesthesia [Recovering/Resolving]
  - Mood swings [Unknown]
  - Dizziness [Recovering/Resolving]
  - Depressed level of consciousness [Recovering/Resolving]
  - Drug withdrawal syndrome [Recovering/Resolving]
  - Eye pain [Unknown]
  - Menstrual discomfort [Unknown]
